FAERS Safety Report 5132695-1 (Version None)
Quarter: 2006Q4

REPORT INFORMATION
  Report Type: 
  Country: None (occurrence: None)
  Receive Date: 20061017
  Receipt Date: 20060807
  Transmission Date: 20070319
  Serious: Yes (Hospitalization, Disabling)
  Sender: FDA-Public Use
  Company Number: 2006S1000181

PATIENT
  Age: 58 Year
  Sex: Male

DRUGS (5)
  1. ACITRETIN [Suspect]
     Indication: RASH PAPULAR
     Dosage: SEE IMAGE, PO
     Route: 048
     Dates: start: 20060221, end: 20060405
  2. ACITRETIN [Suspect]
     Indication: RASH PAPULAR
     Dosage: SEE IMAGE, PO
     Route: 048
     Dates: start: 20060406, end: 20060427
  3. ACITRETIN [Suspect]
     Indication: RASH PAPULAR
     Dosage: SEE IMAGE, PO
     Route: 048
     Dates: start: 20060428, end: 20060501
  4. EVENING PRIMROSE OIL (ODENOTHERA BIENNIS OIL) [Suspect]
     Indication: RASH PAPULAR
     Dosage: PO
     Route: 048
     Dates: start: 20060301, end: 20060501
  5. STEROIDS NOS (NO PREF. NAME) [Suspect]
     Indication: DERMATITIS EXFOLIATIVE
     Dosage: PO
     Route: 048
     Dates: start: 20060501

REACTIONS (10)
  - CONJUNCTIVITIS [None]
  - DERMATITIS EXFOLIATIVE [None]
  - DRUG INEFFECTIVE [None]
  - ECTROPION [None]
  - EYELID OEDEMA [None]
  - FACE OEDEMA [None]
  - HYPERKERATOSIS [None]
  - MUCOSAL DRYNESS [None]
  - OEDEMA PERIPHERAL [None]
  - SKIN ATROPHY [None]
